FAERS Safety Report 15713074 (Version 1)
Quarter: 2018Q4

REPORT INFORMATION
  Report Type: Report from Study
  Country: GB (occurrence: GB)
  Receive Date: 20181212
  Receipt Date: 20181212
  Transmission Date: 20190205
  Serious: Yes (Other)
  Sender: FDA-Public Use
  Company Number: PHHY2018GB025410

PATIENT
  Sex: Female

DRUGS (1)
  1. COSENTYX [Suspect]
     Active Substance: SECUKINUMAB
     Indication: PSORIATIC ARTHROPATHY
     Dosage: 300 MG, QMO
     Route: 058
     Dates: start: 20170807

REACTIONS (9)
  - Oropharyngeal pain [Recovered/Resolved]
  - Tonsillitis [Recovered/Resolved]
  - Ear infection [Unknown]
  - Sputum discoloured [Unknown]
  - Productive cough [Unknown]
  - Lower respiratory tract infection [Unknown]
  - Ear pain [Recovered/Resolved]
  - Neck pain [Recovered/Resolved]
  - Ear infection [Recovered/Resolved]
